APPROVED DRUG PRODUCT: SEGLUROMET
Active Ingredient: ERTUGLIFLOZIN; METFORMIN HYDROCHLORIDE
Strength: 2.5MG;500MG
Dosage Form/Route: TABLET;ORAL
Application: N209806 | Product #001
Applicant: MERCK SHARP AND DOHME LLC A SUB OF MERCK AND CO INC
Approved: Dec 19, 2017 | RLD: Yes | RS: No | Type: RX

PATENTS:
Patent 9439902 | Expires: Oct 21, 2030
Patent 8080580 | Expires: Jul 13, 2030
Patent 9308204 | Expires: Oct 21, 2030